FAERS Safety Report 14162885 (Version 1)
Quarter: 2017Q4

REPORT INFORMATION
  Report Type: Spontaneous
  Country: JP (occurrence: JP)
  Receive Date: 20171106
  Receipt Date: 20171106
  Transmission Date: 20180321
  Serious: Yes (Hospitalization, Other)
  Sender: FDA-Public Use
  Company Number: JP-PFIZER INC-2017470177

PATIENT
  Age: 90 Year
  Sex: Female
  Weight: 40 kg

DRUGS (33)
  1. HEPARIN SODIUM N [Concomitant]
     Active Substance: HEPARIN SODIUM
     Indication: CARDIAC FAILURE
     Dosage: 8000 IU, DAILY
     Dates: start: 20170711, end: 20170711
  2. PLETAL [Concomitant]
     Active Substance: CILOSTAZOL
  3. QUETIAPINE. [Concomitant]
     Active Substance: QUETIAPINE
  4. ETIZOLAM [Concomitant]
     Active Substance: ETIZOLAM
  5. BROTIZOLAM [Concomitant]
     Active Substance: BROTIZOLAM
  6. OMEPRAZOLE. [Concomitant]
     Active Substance: OMEPRAZOLE
     Indication: CARDIAC FAILURE
     Dosage: UNK
     Dates: start: 20170711
  7. VITAMEDIN [Concomitant]
     Active Substance: CYANOCOBALAMIN\PYRIDOXINE HYDROCHLORIDE\THIAMINE
     Dosage: UNK
     Dates: start: 20170712
  8. SULPIRIDE [Concomitant]
     Active Substance: SULPIRIDE
  9. OLMETEC [Concomitant]
     Active Substance: OLMESARTAN MEDOXOMIL
  10. UNASYN-S 3G [Suspect]
     Active Substance: AMPICILLIN SODIUM\SULBACTAM SODIUM
     Dosage: 3 G, 2X/DAY
     Dates: start: 20170713, end: 20170720
  11. ALPRAZOLAM. [Concomitant]
     Active Substance: ALPRAZOLAM
  12. LIMAPROST ALFADEX [Concomitant]
     Active Substance: LIMAPROST
  13. DIQUAS [Concomitant]
     Active Substance: DIQUAFOSOL TETRASODIUM
  14. TEARBALANCE [Concomitant]
     Active Substance: HYALURONATE SODIUM
  15. OMEPRAZOLE. [Concomitant]
     Active Substance: OMEPRAZOLE
     Indication: BLOOD PRESSURE DECREASED
  16. FRANDOL [Concomitant]
     Active Substance: ISOSORBIDE DINITRATE
  17. LEVOFLOXACIN. [Concomitant]
     Active Substance: LEVOFLOXACIN
  18. REBAMIPIDE [Concomitant]
     Active Substance: REBAMIPIDE
  19. BONALON [Concomitant]
     Active Substance: ALENDRONATE SODIUM
  20. MUCOSTA [Concomitant]
     Active Substance: REBAMIPIDE
  21. TARIVID [Concomitant]
     Active Substance: OFLOXACIN
  22. UNASYN-S 3G [Suspect]
     Active Substance: AMPICILLIN SODIUM\SULBACTAM SODIUM
     Indication: PNEUMONIA ASPIRATION
     Dosage: 3 G, 3X/DAY
     Dates: start: 20170711, end: 20170712
  23. NOR ADRENALIN [Concomitant]
     Indication: CARDIAC FAILURE
     Dosage: UNK
     Dates: start: 20170711, end: 20170713
  24. NOR ADRENALIN [Concomitant]
     Indication: BLOOD PRESSURE DECREASED
  25. NEXIUM [Concomitant]
     Active Substance: ESOMEPRAZOLE MAGNESIUM
  26. BFLUID [Concomitant]
     Active Substance: AMINO ACIDS\DEXTROSE\ELECTROLYTES NOS\VITAMINS
     Dosage: UNK
     Dates: start: 20170712
  27. REFLEX [Concomitant]
     Active Substance: MIRTAZAPINE
  28. TENORMIN [Concomitant]
     Active Substance: ATENOLOL
  29. FUROSEMIDE TEVA [Concomitant]
     Active Substance: FUROSEMIDE
  30. APHTASOLON [Concomitant]
  31. HEPARIN SODIUM N [Concomitant]
     Active Substance: HEPARIN SODIUM
     Indication: BLOOD PRESSURE DECREASED
     Dosage: 6000 IU, DAILY
     Dates: start: 20170712, end: 20170715
  32. NEUQUINON [Concomitant]
     Active Substance: UBIDECARENONE
  33. AMLODIPINE [Concomitant]
     Active Substance: AMLODIPINE BESYLATE

REACTIONS (3)
  - Tachypnoea [Unknown]
  - Pyrexia [Recovered/Resolved]
  - Depressed level of consciousness [Unknown]

NARRATIVE: CASE EVENT DATE: 20170716
